FAERS Safety Report 18566701 (Version 1)
Quarter: 2020Q4

REPORT INFORMATION
  Report Type: Spontaneous
  Country: US (occurrence: US)
  Receive Date: 20201201
  Receipt Date: 20201201
  Transmission Date: 20210114
  Serious: No
  Sender: FDA-Public Use
  Company Number: US-BAYER-2020-253547

PATIENT
  Age: 48 Year
  Sex: Male

DRUGS (3)
  1. TINACTIN [Concomitant]
     Active Substance: TOLNAFTATE
     Dosage: UNK
  2. LOTRIMIN ULTRA ANTIFUNGAL [Suspect]
     Active Substance: BUTENAFINE HYDROCHLORIDE
     Indication: THERAPEUTIC SKIN CARE TOPICAL
     Dosage: 1 DF, BID
     Route: 061
     Dates: start: 202009, end: 202010
  3. TINACTIN [Suspect]
     Active Substance: TOLNAFTATE
     Indication: THERAPEUTIC SKIN CARE TOPICAL
     Dosage: 3 DF, QD
     Route: 048
     Dates: start: 202010, end: 202011

REACTIONS (2)
  - Inappropriate schedule of product administration [None]
  - Drug ineffective [Unknown]

NARRATIVE: CASE EVENT DATE: 202009
